FAERS Safety Report 7340219-3 (Version None)
Quarter: 2011Q1

REPORT INFORMATION
  Report Type: 
  Country: None (occurrence: None)
  Receive Date: 20110309
  Receipt Date: 20110228
  Transmission Date: 20110831
  Serious: Yes (Hospitalization, Disabling)
  Sender: FDA-Public Use
  Company Number: JP-NOVOPROD-320702

PATIENT
  Age: 32 Year
  Sex: Male
  Weight: 48 kg

DRUGS (3)
  1. ZOSYN [Concomitant]
     Dosage: 18 G, QD
     Route: 042
     Dates: start: 20100204
  2. LEVEMIR [Suspect]
     Indication: PRODUCT USED FOR UNKNOWN INDICATION
     Dosage: 6 IU, QD
     Route: 058
     Dates: start: 20100215
  3. NOVORAPID CHU FLEXPEN [Suspect]
     Indication: PRODUCT USED FOR UNKNOWN INDICATION
     Dosage: UNK
     Route: 058

REACTIONS (2)
  - HYPOGLYCAEMIC COMA [None]
  - HYPOGLYCAEMIC ENCEPHALOPATHY [None]
